FAERS Safety Report 25025255 (Version 1)
Quarter: 2025Q1

REPORT INFORMATION
  Report Type: Spontaneous
  Country: FR (occurrence: FR)
  Receive Date: 20250228
  Receipt Date: 20250228
  Transmission Date: 20250409
  Serious: Yes (Hospitalization)
  Sender: TEVA
  Company Number: None

PATIENT
  Age: 30 Year
  Sex: Male
  Weight: 77 kg

DRUGS (2)
  1. FINASTERIDE [Suspect]
     Active Substance: FINASTERIDE
     Indication: Alopecia
     Route: 061
     Dates: start: 20240701, end: 20241023
  2. MINOXIDIL [Suspect]
     Active Substance: MINOXIDIL
     Indication: Alopecia
     Route: 048
     Dates: start: 20190701, end: 20241023

REACTIONS (1)
  - Portal vein thrombosis [Not Recovered/Not Resolved]

NARRATIVE: CASE EVENT DATE: 20241023
